FAERS Safety Report 8887487 (Version 1)
Quarter: 2012Q4

REPORT INFORMATION
  Report Type: Spontaneous
  Country: GB (occurrence: None)
  Receive Date: 20121031
  Receipt Date: 20121031
  Transmission Date: 20130627
  Serious: Yes (Death, Hospitalization, Other)
  Sender: FDA-Public Use
  Company Number: GB-023257

PATIENT
  Age: 6 Year
  Sex: Female
  Weight: 18 kg

DRUGS (11)
  1. BUSULFAN [Suspect]
     Route: 048
     Dates: start: 20101108, end: 20101111
  2. BUSULFAN [Suspect]
  3. CYCLOPHOSPHAMIDE [Suspect]
     Dosage: 50mg/kg, Intravenous (not otherwise specified)
     Route: 042
     Dates: start: 20101112, end: 20101115
  4. METHOTREXATE [Suspect]
     Route: 040
     Dates: start: 20101121, end: 20101121
  5. METHOTREXATE [Suspect]
     Route: 040
     Dates: start: 20101121, end: 20101121
  6. METHOTREXATE [Suspect]
     Dates: start: 20101124, end: 20101124
  7. METHOTREXATE [Suspect]
     Dates: start: 20101124, end: 20101124
  8. ALEMTUZUMAB (ALEMTUZUMAB) [Concomitant]
  9. CICLOSPORIN (CICLOSPORIN) [Concomitant]
  10. THIOTEPA (THIOTEPA) [Concomitant]
  11. DEFERASIROX (DEFERRASIROX) [Concomitant]

REACTIONS (11)
  - Cardio-respiratory arrest [None]
  - Cytomegalovirus infection [None]
  - Fungal infection [None]
  - Idiopathic pneumonia syndrome [None]
  - Posterior reversible encephalopathy syndrome [None]
  - Metapneumovirus infection [None]
  - Mucosal inflammation [None]
  - Febrile neutropenia [None]
  - Urinary tract infection [None]
  - Weight decreased [None]
  - Periorbital oedema [None]
